FAERS Safety Report 26102473 (Version 1)
Quarter: 2025Q4

REPORT INFORMATION
  Report Type: Spontaneous
  Country: CN (occurrence: CN)
  Receive Date: 20251128
  Receipt Date: 20251128
  Transmission Date: 20260118
  Serious: Yes (Other)
  Sender: PFIZER
  Company Number: CN-PFIZER INC-PV202500138202

PATIENT
  Age: 59 Year
  Sex: Female
  Weight: 55 kg

DRUGS (2)
  1. CYTARABINE [Suspect]
     Active Substance: CYTARABINE
     Indication: Acute myeloid leukaemia
     Dosage: 0.15 G, 1X/DAY
     Route: 041
     Dates: start: 20251029, end: 20251105
  2. DAUNORUBICIN HYDROCHLORIDE [Suspect]
     Active Substance: DAUNORUBICIN HYDROCHLORIDE
     Indication: Acute myeloid leukaemia
     Dosage: 100 MG, 1X/DAY
     Route: 041
     Dates: start: 20251029, end: 20251101

REACTIONS (5)
  - Myelosuppression [Recovering/Resolving]
  - Pyrexia [Recovered/Resolved]
  - Oropharyngeal pain [Recovering/Resolving]
  - Cough [Recovering/Resolving]
  - Infection [Recovering/Resolving]

NARRATIVE: CASE EVENT DATE: 20251102
